FAERS Safety Report 6079624-4 (Version None)
Quarter: 2009Q1

REPORT INFORMATION
  Report Type: 
  Country: None (occurrence: None)
  Receive Date: 20090217
  Receipt Date: 20090210
  Transmission Date: 20090719
  Serious: Yes (Other)
  Sender: FDA-Public Use
  Company Number: US-JNJFOC-20090200027

PATIENT
  Sex: Female
  Weight: 88.45 kg

DRUGS (4)
  1. DURAGESIC-100 [Suspect]
     Indication: ARTHRITIS
     Route: 062
  2. DURAGESIC-100 [Suspect]
     Indication: SPINAL COLUMN STENOSIS
     Dosage: TWO 100UG/HR PATCHES
     Route: 062
  3. KADIAN [Concomitant]
     Indication: PAIN
     Route: 048
  4. OXYCODON IR [Concomitant]
     Indication: PAIN
     Route: 048

REACTIONS (9)
  - ARTHRALGIA [None]
  - DEPRESSION [None]
  - DRUG INEFFECTIVE [None]
  - INAPPROPRIATE SCHEDULE OF DRUG ADMINISTRATION [None]
  - INTERVERTEBRAL DISC DEGENERATION [None]
  - MALAISE [None]
  - PAIN [None]
  - STRESS [None]
  - THERAPY CESSATION [None]
